FAERS Safety Report 10487012 (Version 3)
Quarter: 2014Q4

REPORT INFORMATION
  Report Type: Report from Study
  Country: RU (occurrence: RU)
  Receive Date: 20141001
  Receipt Date: 20141229
  Transmission Date: 20150528
  Serious: Yes (Hospitalization)
  Sender: FDA-Public Use
  Company Number: RU-SA-2014SA131657

PATIENT
  Age: 77 Year
  Sex: Female
  Weight: 75 kg

DRUGS (5)
  1. PLAVIX [Suspect]
     Active Substance: CLOPIDOGREL BISULFATE
     Indication: THROMBOSIS PROPHYLAXIS
     Route: 048
     Dates: start: 201101, end: 201402
  2. ALL OTHER THERAPEUTIC PRODUCTS [Concomitant]
     Active Substance: UNSPECIFIED INGREDIENT
     Indication: ANTIVIRAL TREATMENT
     Dosage: ROUTE: IN EYE
     Dates: start: 201403, end: 201404
  3. PLAVIX [Suspect]
     Active Substance: CLOPIDOGREL BISULFATE
     Indication: THROMBOSIS PROPHYLAXIS
     Route: 048
  4. AZOPT [Concomitant]
     Active Substance: BRINZOLAMIDE
     Indication: INTRAOCULAR PRESSURE TEST ABNORMAL
     Dosage: ROUTE: IN THE EYE
     Dates: start: 201408
  5. KARDIKET [Concomitant]
     Indication: PROPHYLAXIS
     Route: 048
     Dates: start: 201101

REACTIONS (5)
  - Blindness [Unknown]
  - Glaucoma [Unknown]
  - Type 2 diabetes mellitus [Unknown]
  - Retinal vascular thrombosis [Unknown]
  - Retinopathy [Unknown]

NARRATIVE: CASE EVENT DATE: 201403
